FAERS Safety Report 19373853 (Version 2)
Quarter: 2021Q2

REPORT INFORMATION
  Report Type: Report from Study
  Country: US (occurrence: US)
  Receive Date: 20210603
  Receipt Date: 20210604
  Transmission Date: 20210717
  Serious: No
  Sender: FDA-Public Use
  Company Number: NVSC2021US125275

PATIENT
  Sex: Male

DRUGS (1)
  1. ENTRESTO [Suspect]
     Active Substance: SACUBITRIL\VALSARTAN
     Indication: PRODUCT USED FOR UNKNOWN INDICATION
     Dosage: UNK UNK, UNKNOWN(EVERY 12 YEARS)
     Route: 048
     Dates: start: 20210429

REACTIONS (3)
  - Inappropriate schedule of product administration [Unknown]
  - Weight increased [Unknown]
  - Cough [Not Recovered/Not Resolved]
